FAERS Safety Report 9695318 (Version 2)
Quarter: 2013Q4

REPORT INFORMATION
  Report Type: Spontaneous
  Country: GR (occurrence: GR)
  Receive Date: 20131119
  Receipt Date: 20131127
  Transmission Date: 20140711
  Serious: Yes (Hospitalization)
  Sender: FDA-Public Use
  Company Number: GR-JNJFOC-20131106980

PATIENT
  Age: 64 Year
  Sex: Male

DRUGS (2)
  1. INFLIXIMAB, RECOMBINANT [Suspect]
     Indication: PSORIASIS
     Dosage: FIRST DOSE
     Route: 042
  2. INFLIXIMAB, RECOMBINANT [Suspect]
     Indication: PSORIASIS
     Dosage: TWO WEEKS AFTER THE FIRST DOSE
     Route: 042

REACTIONS (2)
  - Interstitial lung disease [Recovered/Resolved]
  - Respiratory failure [Unknown]
